FAERS Safety Report 11702513 (Version 1)
Quarter: 2015Q4

REPORT INFORMATION
  Report Type: Spontaneous
  Country: PL (occurrence: PL)
  Receive Date: 20151105
  Receipt Date: 20151105
  Transmission Date: 20160304
  Serious: Yes (Other)
  Sender: FDA-Public Use
  Company Number: PL-ROXANE LABORATORIES, INC.-2015-RO-01805RO

PATIENT
  Age: 39 Year
  Sex: Female

DRUGS (1)
  1. DIAZEPAM. [Suspect]
     Active Substance: DIAZEPAM
     Indication: STIFF PERSON SYNDROME
     Route: 065

REACTIONS (5)
  - Unresponsive to stimuli [Recovered/Resolved]
  - Latent autoimmune diabetes in adults [Unknown]
  - Drug withdrawal syndrome [Recovered/Resolved]
  - Stiff person syndrome [Unknown]
  - Tachyphylaxis [Unknown]
